FAERS Safety Report 26099983 (Version 1)
Quarter: 2025Q4

REPORT INFORMATION
  Report Type: Report from Study
  Country: CA (occurrence: CA)
  Receive Date: 20251128
  Receipt Date: 20251128
  Transmission Date: 20260117
  Serious: Yes (Hospitalization)
  Sender: CELLTRION
  Company Number: CA-CELLTRION INC.-2025CA021983

PATIENT

DRUGS (1)
  1. INFLIXIMAB-DYYB [Suspect]
     Active Substance: INFLIXIMAB-DYYB
     Indication: Crohn^s disease
     Dosage: 700 MG, Q4WEEKS
     Route: 042
     Dates: start: 20250604

REACTIONS (9)
  - Bladder disorder [Unknown]
  - Procedural pain [Unknown]
  - Foot operation [Unknown]
  - Pain [Unknown]
  - Thirst [Unknown]
  - Dehydration [Unknown]
  - Hypotension [Unknown]
  - Off label use [Unknown]
  - Intentional dose omission [Unknown]

NARRATIVE: CASE EVENT DATE: 20250604
